FAERS Safety Report 9931214 (Version 1)
Quarter: 2014Q1

REPORT INFORMATION
  Report Type: Report from Study
  Country: US (occurrence: US)
  Receive Date: 20140228
  Receipt Date: 20140228
  Transmission Date: 20141002
  Serious: Yes (Other)
  Sender: FDA-Public Use
  Company Number: US-ROCHE-1332192

PATIENT
  Age: 88 Year
  Sex: Female
  Weight: 62.2 kg

DRUGS (16)
  1. LUCENTIS [Suspect]
     Indication: AGE-RELATED MACULAR DEGENERATION
     Route: 050
     Dates: start: 20100402
  2. AVASTIN [Suspect]
     Indication: PRODUCT USED FOR UNKNOWN INDICATION
     Dosage: OS
     Route: 047
     Dates: start: 20071010, end: 20100113
  3. ASPIRIN [Concomitant]
     Route: 065
  4. DYNACIRC [Concomitant]
  5. LEVOXYL [Concomitant]
  6. LOVAZA [Concomitant]
  7. NORVASC [Concomitant]
     Route: 048
  8. OCUFLOX [Concomitant]
     Dosage: FOUR TIMES FOR 4 DAYS AFTER INJECTION
     Route: 047
  9. VITAMIN C [Concomitant]
     Dosage: PRN
     Route: 065
  10. VITAMIN D3 [Concomitant]
  11. ZYMAR [Concomitant]
     Dosage: OS X 4 DAYS
     Route: 047
     Dates: start: 20071010, end: 20090309
  12. ZYMAR [Concomitant]
     Dosage: OS X 4 DAYS
     Route: 047
     Dates: start: 20100402, end: 20101013
  13. PHENYLEPHRINE [Concomitant]
     Route: 047
  14. TROPICAMIDE [Concomitant]
     Route: 047
  15. PROPARACAINE [Concomitant]
     Route: 047
  16. ACTOS [Concomitant]

REACTIONS (8)
  - Macular oedema [Unknown]
  - Vision blurred [Unknown]
  - Abdominal discomfort [Unknown]
  - Macular degeneration [Unknown]
  - Rash [Unknown]
  - Erythema [Unknown]
  - Macular fibrosis [Unknown]
  - Off label use [Unknown]
